FAERS Safety Report 5479156-8 (Version None)
Quarter: 2007Q4

REPORT INFORMATION
  Report Type: 
  Country: None (occurrence: None)
  Receive Date: 20071008
  Receipt Date: 20071001
  Transmission Date: 20080405
  Serious: Yes (Other)
  Sender: FDA-Public Use
  Company Number: PHEH2007US12600

PATIENT
  Age: 65 Year
  Sex: Male
  Weight: 98.866 kg

DRUGS (12)
  1. LOTENSIN [Suspect]
     Indication: HYPERTENSION
     Dosage: 40 MG, BID
     Route: 048
     Dates: start: 19870101
  2. BENAZEPRIL HYDROCHLORIDE [Suspect]
     Indication: HYPERTENSION
     Dosage: 40 MG, BID
     Route: 048
     Dates: end: 20070912
  3. GLUCOVANCE [Concomitant]
     Dosage: 5/5000, BID
     Route: 048
     Dates: start: 20030101
  4. BYETTA [Concomitant]
     Dosage: 10 UG, BID
     Route: 058
  5. ACTOS [Concomitant]
     Dosage: 15 MG, QD
     Route: 048
  6. LEVEMIR [Concomitant]
     Dosage: 15 U, QHS
  7. VALIUM [Concomitant]
     Dosage: 5 MG, 1-2 QD
  8. PLAVIX [Concomitant]
     Indication: CORONARY ARTERY DISEASE
     Dosage: 75 MG, QD
     Route: 048
     Dates: start: 20030101
  9. LIPITOR [Concomitant]
     Dosage: 80 MG, QD
     Route: 048
     Dates: start: 20030101
  10. HYDROCHLOROTHIAZIDE [Concomitant]
     Indication: HYPERTENSION
     Dosage: 25 MG, QD
     Route: 048
     Dates: start: 20030101
  11. POTASSIUM CHLORIDE [Concomitant]
     Indication: HYPERTENSION
     Dosage: 20 MEQ, QD
     Route: 048
     Dates: start: 20030101
  12. BISOPROLOL FUMARATE [Concomitant]
     Indication: HYPERTENSION
     Dosage: 10 MG, QD
     Route: 048
     Dates: start: 20030101

REACTIONS (6)
  - CORONARY ARTERY DISEASE [None]
  - MYOCARDIAL INFARCTION [None]
  - PERCUTANEOUS CORONARY INTERVENTION [None]
  - PHARYNGEAL OEDEMA [None]
  - STENT PLACEMENT [None]
  - TONGUE OEDEMA [None]
